FAERS Safety Report 8884185 (Version 1)
Quarter: 2012Q4

REPORT INFORMATION
  Report Type: 
  Country: US (occurrence: US)
  Receive Date: 20121102
  Receipt Date: 20121102
  Transmission Date: 20130627
  Serious: No
  Sender: FDA-Public Use
  Company Number: US-ASTRAZENECA-2012SE13625

PATIENT
  Age: 78 Year
  Sex: Female
  Weight: 45.4 kg

DRUGS (3)
  1. CRESTOR [Suspect]
     Indication: BLOOD CHOLESTEROL INCREASED
     Route: 048
  2. CRESTOR [Suspect]
     Indication: DIABETES PROPHYLAXIS
     Route: 048
  3. METFORMIN [Concomitant]

REACTIONS (2)
  - Diabetes mellitus [Unknown]
  - Off label use [Unknown]
